FAERS Safety Report 6554963-9 (Version None)
Quarter: 2010Q1

REPORT INFORMATION
  Report Type: 
  Country: None (occurrence: None)
  Receive Date: 20100126
  Receipt Date: 20100126
  Transmission Date: 20100710
  Serious: Yes (Hospitalization)
  Sender: FDA-Public Use
  Company Number: None

PATIENT
  Age: 78 Year
  Sex: Female
  Weight: 73.9363 kg

DRUGS (9)
  1. TRILEPTAL [Suspect]
     Indication: TRIGEMINAL NEURALGIA
     Dosage: 300 MG BID PO
     Route: 048
     Dates: start: 20100118, end: 20100123
  2. L-THROXINE [Concomitant]
  3. CARVEDILOL [Concomitant]
  4. RAMIPRIL [Concomitant]
  5. ZETIA [Concomitant]
  6. PRAVASTATIN [Concomitant]
  7. PLAVIX [Concomitant]
  8. ASPIRIN [Concomitant]
  9. MULTI-VITAMIN [Concomitant]

REACTIONS (4)
  - ELECTROLYTE IMBALANCE [None]
  - HYPONATRAEMIA [None]
  - NAUSEA [None]
  - RETCHING [None]
